FAERS Safety Report 8719825 (Version 2)
Quarter: 2012Q4

REPORT INFORMATION
  Report Type: 
  Country: US (occurrence: US)
  Receive Date: 20120813
  Receipt Date: 20120905
  Transmission Date: 20130627
  Serious: Yes (Hospitalization)
  Sender: FDA-Public Use
  Company Number: US-JNJFOC-20120803850

PATIENT
  Age: 88 Year
  Sex: Female

DRUGS (5)
  1. TYLENOL [Suspect]
     Route: 065
  2. TYLENOL [Suspect]
     Indication: PRODUCT USED FOR UNKNOWN INDICATION
     Route: 065
  3. LETAIRIS [Suspect]
     Indication: INTERSTITIAL LUNG DISEASE
     Route: 048
     Dates: start: 20090220
  4. LETAIRIS [Suspect]
     Indication: SCLERODERMA
     Route: 048
     Dates: start: 20090220
  5. LETAIRIS [Suspect]
     Indication: PULMONARY HYPERTENSION
     Route: 048
     Dates: start: 20090220

REACTIONS (2)
  - Foreign body aspiration [Unknown]
  - Pneumonia [Recovered/Resolved]
